FAERS Safety Report 8890990 (Version 1)
Quarter: 2012Q4

REPORT INFORMATION
  Report Type: 
  Country: US (occurrence: US)
  Receive Date: 20121106
  Receipt Date: 20121106
  Transmission Date: 20130627
  Serious: Yes (Other)
  Sender: FDA-Public Use
  Company Number: US-US-EMD SERONO, INC.-7171010

PATIENT
  Sex: Female
  Weight: 57 kg

DRUGS (25)
  1. REBIF [Suspect]
     Indication: MULTIPLE SCLEROSIS
     Route: 058
  2. VITAMIN D [Concomitant]
     Indication: PRODUCT USED FOR UNKNOWN INDICATION
  3. VITAMIN E BAR [Concomitant]
     Indication: PRODUCT USED FOR UNKNOWN INDICATION
  4. MULTIVITAMIN [Concomitant]
     Indication: PRODUCT USED FOR UNKNOWN INDICATION
  5. OXYBUTYNIN ER [Concomitant]
     Indication: PRODUCT USED FOR UNKNOWN INDICATION
  6. EVOXAC [Concomitant]
     Indication: PRODUCT USED FOR UNKNOWN INDICATION
  7. CYMBALTA [Concomitant]
     Indication: PRODUCT USED FOR UNKNOWN INDICATION
  8. LEVOTHYROXINE [Concomitant]
     Indication: PRODUCT USED FOR UNKNOWN INDICATION
  9. GABAPENTIN [Concomitant]
     Indication: PRODUCT USED FOR UNKNOWN INDICATION
  10. MYCOPHENOLATE [Concomitant]
     Indication: PRODUCT USED FOR UNKNOWN INDICATION
  11. SERTRALINE [Concomitant]
     Indication: PRODUCT USED FOR UNKNOWN INDICATION
  12. DANTROLENE [Concomitant]
     Indication: PRODUCT USED FOR UNKNOWN INDICATION
  13. BENZONATATE [Concomitant]
     Indication: PRODUCT USED FOR UNKNOWN INDICATION
  14. NADOLOL [Concomitant]
     Indication: PRODUCT USED FOR UNKNOWN INDICATION
  15. CALCIUM PLUS D [Concomitant]
     Indication: PRODUCT USED FOR UNKNOWN INDICATION
  16. VITAMIN E [Concomitant]
     Indication: PRODUCT USED FOR UNKNOWN INDICATION
  17. DOCUSATE SODIUM [Concomitant]
     Indication: PRODUCT USED FOR UNKNOWN INDICATION
  18. SIMVASTATIN [Concomitant]
     Indication: PRODUCT USED FOR UNKNOWN INDICATION
  19. ONDANSETRON [Concomitant]
     Indication: PRODUCT USED FOR UNKNOWN INDICATION
  20. MEGESTROL AC [Concomitant]
     Indication: PRODUCT USED FOR UNKNOWN INDICATION
  21. TYLENOL 8 HOUR [Concomitant]
     Indication: PRODUCT USED FOR UNKNOWN INDICATION
  22. MUCINEX COLD LIQUID CHILD [Concomitant]
     Indication: PRODUCT USED FOR UNKNOWN INDICATION
  23. PROTEIN POW [Concomitant]
     Indication: PRODUCT USED FOR UNKNOWN INDICATION
  24. PEDIALYTE SOL FREEZE [Concomitant]
     Indication: PRODUCT USED FOR UNKNOWN INDICATION
  25. PRILOSEC [Concomitant]
     Indication: PRODUCT USED FOR UNKNOWN INDICATION

REACTIONS (1)
  - Lung carcinoma cell type unspecified stage IV [Unknown]
